FAERS Safety Report 7517244-2 (Version None)
Quarter: 2011Q2

REPORT INFORMATION
  Report Type: 
  Country: None (occurrence: None)
  Receive Date: 20110601
  Receipt Date: 20110524
  Transmission Date: 20111010
  Serious: Yes (Hospitalization, Other)
  Sender: FDA-Public Use
  Company Number: US-ASTRAZENECA-2011SE32010

PATIENT
  Sex: Male

DRUGS (20)
  1. ISOSORBIDE MON [Concomitant]
     Dates: start: 20030530
  2. ZOCOR [Concomitant]
     Dosage: 10 MG
     Dates: start: 20030627
  3. METHYLPRED [Concomitant]
     Dosage: 4 MG
     Dates: start: 20030805
  4. HYDROMORPHONE HCL [Concomitant]
     Dosage: 4 MG
     Dates: start: 20030805
  5. PROTONIX [Concomitant]
     Dosage: 40 MG
     Dates: start: 20030814
  6. LEXAPRO [Concomitant]
     Dosage: 10 MG
     Dates: start: 20030725
  7. LORAZEPAM [Concomitant]
     Dosage: 1 MG
     Dates: start: 20030903
  8. TOPROL-XL [Concomitant]
     Dosage: 50 MG
     Dates: start: 20030702
  9. SEROQUEL [Suspect]
     Dosage: 100 MG
     Route: 048
     Dates: start: 20030903
  10. FLUOXETINE [Concomitant]
     Dosage: 20 MG
     Dates: start: 20030621
  11. ALPRAZOLAM [Concomitant]
     Dosage: 0.25 MG
     Dates: start: 20030807
  12. AMBIEN [Concomitant]
     Dosage: 10 MG
     Dates: start: 20030827
  13. OXYCODONE HCL AND ACETAMINOPHEN [Concomitant]
     Dosage: 5-325 MG
     Dates: start: 20030725
  14. NEURONTIN [Concomitant]
     Dosage: 100 MG
     Dates: start: 20030813
  15. ZYPREXA [Concomitant]
     Dosage: 2.5 MG
     Dates: start: 20030813
  16. PLAVIX [Concomitant]
     Dosage: 75 MG
     Dates: start: 20030702
  17. DIOVAN [Concomitant]
     Dosage: 80 MG
     Dates: start: 20030726
  18. MIRTAZAPINE [Concomitant]
     Dosage: 15 MG
     Dates: start: 20030827
  19. CLONAZEPAM [Concomitant]
     Dosage: 0.5 MG
     Dates: start: 20030813
  20. PREDNISONE [Concomitant]
     Dosage: 20 MG
     Dates: start: 20030917

REACTIONS (13)
  - CHRONIC OBSTRUCTIVE PULMONARY DISEASE [None]
  - DIABETES MELLITUS [None]
  - HYPERTENSION [None]
  - HYPERLIPIDAEMIA [None]
  - INJURY [None]
  - CHEST PAIN [None]
  - JOINT SPRAIN [None]
  - CORONARY ARTERY DISEASE [None]
  - CATHETERISATION CARDIAC [None]
  - SYNCOPE [None]
  - GASTROOESOPHAGEAL REFLUX DISEASE [None]
  - BRONCHITIS [None]
  - RESPIRATORY FAILURE [None]
